FAERS Safety Report 21712780 (Version 1)
Quarter: 2022Q4

REPORT INFORMATION
  Report Type: Spontaneous
  Country: US (occurrence: None)
  Receive Date: 20221208
  Receipt Date: 20221208
  Transmission Date: 20230112
  Serious: Yes (Hospitalization)
  Sender: FDA-Public Use
  Company Number: None

PATIENT
  Age: 53 Year
  Sex: Male

DRUGS (1)
  1. AMBRISENTAN [Suspect]
     Active Substance: AMBRISENTAN
     Indication: Pulmonary hypertension
     Dosage: FREQUENCY : DAILY;?
     Route: 048
     Dates: start: 20170830

REACTIONS (9)
  - Cough [None]
  - Rhinorrhoea [None]
  - Dyspnoea [None]
  - Nasal congestion [None]
  - Headache [None]
  - Chest pain [None]
  - Pyrexia [None]
  - Acute respiratory failure [None]
  - COVID-19 [None]

NARRATIVE: CASE EVENT DATE: 20221124
